FAERS Safety Report 20132644 (Version 7)
Quarter: 2022Q3

REPORT INFORMATION
  Report Type: Report from Study
  Country: US (occurrence: US)
  Receive Date: 20211130
  Receipt Date: 20220719
  Transmission Date: 20221026
  Serious: Yes (Hospitalization, Other)
  Sender: FDA-Public Use
  Company Number: US-NOVARTISPH-NVSC2021US272268

PATIENT
  Sex: Female

DRUGS (1)
  1. ENTRESTO [Suspect]
     Active Substance: SACUBITRIL\VALSARTAN
     Indication: Product used for unknown indication
     Dosage: UNK
     Route: 065

REACTIONS (14)
  - Femur fracture [Unknown]
  - Hypoacusis [Unknown]
  - Thyroid disorder [Recovering/Resolving]
  - Joint dislocation [Recovering/Resolving]
  - Pain [Recovering/Resolving]
  - Peripheral swelling [Unknown]
  - Arthralgia [Recovering/Resolving]
  - Fall [Recovered/Resolved]
  - Clavicle fracture [Recovering/Resolving]
  - Contusion [Unknown]
  - Urinary tract infection [Recovered/Resolved]
  - Cystitis [Recovered/Resolved]
  - Pain in extremity [Recovering/Resolving]
  - Wrong technique in product usage process [Not Recovered/Not Resolved]
